FAERS Safety Report 11227160 (Version 1)
Quarter: 2015Q2

REPORT INFORMATION
  Report Type: Spontaneous
  Country: FR (occurrence: FR)
  Receive Date: 20150630
  Receipt Date: 20150630
  Transmission Date: 20150821
  Serious: Yes (Hospitalization)
  Sender: FDA-Public Use
  Company Number: FR-ASTRAZENECA-2015SE63263

PATIENT
  Age: 21008 Day
  Sex: Male

DRUGS (9)
  1. METHOTREXATE [Interacting]
     Active Substance: METHOTREXATE
     Indication: NON-HODGKIN^S LYMPHOMA
     Dosage: 3500 MG/SQUARE METER; ONCE/SINGLE ADMINISTRATION
     Route: 042
     Dates: start: 20150218, end: 20150218
  2. AVLOCARDYL [Concomitant]
     Active Substance: PROPRANOLOL HYDROCHLORIDE
  3. RITUXIMAB [Concomitant]
     Active Substance: RITUXIMAB
     Indication: NON-HODGKIN^S LYMPHOMA
  4. METHOTREXATE [Interacting]
     Active Substance: METHOTREXATE
     Indication: NON-HODGKIN^S LYMPHOMA
     Dosage: ONCE/SINGLE ADMINISTRATION
     Route: 042
     Dates: start: 20150119, end: 20150119
  5. METHOTREXATE [Interacting]
     Active Substance: METHOTREXATE
     Indication: NON-HODGKIN^S LYMPHOMA
     Dosage: ONCE/SINGLE ADMINISTRATION
     Route: 042
     Dates: start: 20150204, end: 20150204
  6. PREDNISOLONE. [Concomitant]
     Active Substance: PREDNISOLONE
     Indication: NON-HODGKIN^S LYMPHOMA
  7. VINCRISTINE [Concomitant]
     Active Substance: VINCRISTINE
     Indication: NON-HODGKIN^S LYMPHOMA
  8. INEXIUM [Suspect]
     Active Substance: ESOMEPRAZOLE
     Indication: PROPHYLAXIS
     Route: 048
     Dates: start: 20150205, end: 20150219
  9. PROCARBAZINE [Concomitant]
     Active Substance: PROCARBAZINE
     Indication: NON-HODGKIN^S LYMPHOMA

REACTIONS (2)
  - Renal failure [Recovering/Resolving]
  - Drug interaction [Unknown]

NARRATIVE: CASE EVENT DATE: 20150220
